FAERS Safety Report 10166999 (Version 1)
Quarter: 2014Q2

REPORT INFORMATION
  Report Type: Spontaneous
  Country: US (occurrence: US)
  Receive Date: 20140512
  Receipt Date: 20140512
  Transmission Date: 20141212
  Serious: No
  Sender: FDA-Public Use
  Company Number: US-009507513-1404USA006966

PATIENT
  Age: 6 Year
  Sex: Male

DRUGS (5)
  1. CLARITIN CHEWABLE TABLETS [Suspect]
     Indication: HYPERSENSITIVITY
     Dosage: 10 MG, QD
     Route: 048
  2. CLARITIN CHEWABLE TABLETS [Suspect]
     Indication: HEADACHE
     Dosage: 5 MG, BID
     Route: 048
  3. CLARITIN CHEWABLE TABLETS [Suspect]
     Indication: EPISTAXIS
  4. CLARITIN CHEWABLE TABLETS [Suspect]
     Indication: COUGH
  5. CLARITIN CHEWABLE TABLETS [Suspect]
     Indication: RESPIRATORY TRACT CONGESTION

REACTIONS (1)
  - Drug effect decreased [Unknown]
